FAERS Safety Report 4353542-1 (Version None)
Quarter: 2004Q2

REPORT INFORMATION
  Report Type: 
  Country: None (occurrence: None)
  Receive Date: 20040430
  Receipt Date: 20040420
  Transmission Date: 20050107
  Serious: Yes (Hospitalization)
  Sender: FDA-Public Use
  Company Number: 2004CG00707

PATIENT
  Age: 65 Year
  Sex: Female

DRUGS (10)
  1. MOPRAL [Suspect]
     Indication: DUODENITIS
     Dosage: 10 MG DAILY PO
     Route: 048
     Dates: end: 20031207
  2. MOPRAL [Suspect]
     Indication: GASTRITIS
     Dosage: 10 MG DAILY PO
     Route: 048
     Dates: end: 20031207
  3. MOPRAL [Suspect]
     Indication: HELICOBACTER INFECTION
     Dosage: 10 MG DAILY PO
     Route: 048
     Dates: end: 20031207
  4. MOPRAL [Suspect]
     Indication: DUODENITIS
     Dosage: 20 MG DAILY PO
     Route: 048
     Dates: start: 20031207, end: 20031214
  5. MOPRAL [Suspect]
     Indication: GASTRITIS
     Dosage: 20 MG DAILY PO
     Route: 048
     Dates: start: 20031207, end: 20031214
  6. MOPRAL [Suspect]
     Indication: HELICOBACTER INFECTION
     Dosage: 20 MG DAILY PO
     Route: 048
     Dates: start: 20031207, end: 20031214
  7. TEGRETOL [Suspect]
     Indication: EPILEPSY
     Dosage: 400 MG DAILY PO
     Route: 048
  8. NAXY [Suspect]
     Indication: HELICOBACTER INFECTION
     Dosage: 1000 MG DAILY PO
     Route: 048
     Dates: start: 20031207, end: 20031214
  9. FLAGYL [Suspect]
     Indication: HELICOBACTER INFECTION
     Dosage: 1000 MG DAILY PO
     Route: 048
     Dates: start: 20031207, end: 20031214
  10. TOPIRAMATE [Concomitant]

REACTIONS (16)
  - ABASIA [None]
  - BALANCE DISORDER [None]
  - BRAIN SCAN ABNORMAL [None]
  - COMPUTERISED TOMOGRAM ABNORMAL [None]
  - COORDINATION ABNORMAL [None]
  - DIFFICULTY IN WALKING [None]
  - DRUG INTERACTION [None]
  - DRUG LEVEL INCREASED [None]
  - DYSARTHRIA [None]
  - EYE DISORDER [None]
  - FALL [None]
  - HELICOBACTER INFECTION [None]
  - HYPERMETROPIA [None]
  - HYPONATRAEMIA [None]
  - NYSTAGMUS [None]
  - PARESIS [None]
